FAERS Safety Report 24199249 (Version 1)
Quarter: 2024Q3

REPORT INFORMATION
  Report Type: Report from Study
  Country: US (occurrence: US)
  Receive Date: 20240812
  Receipt Date: 20240812
  Transmission Date: 20241017
  Serious: Yes (Death, Other)
  Sender: ACADIA PHARMACEUTICALS
  Company Number: US-ACADIA PHARMACEUTICALS INC.-ACA-2024-PIM-003754

PATIENT
  Age: 89 Year
  Sex: Male

DRUGS (18)
  1. NUPLAZID [Suspect]
     Active Substance: PIMAVANSERIN TARTRATE
     Indication: Parkinson^s disease
     Dosage: 34 MILLIGRAM, QD
     Route: 048
     Dates: start: 20240405
  2. MEMANTINE [Concomitant]
     Active Substance: MEMANTINE
  3. CALTRATE [Concomitant]
     Active Substance: CALCIUM CARBONATE
  4. ADVAIR HFA [Concomitant]
     Active Substance: FLUTICASONE PROPIONATE\SALMETEROL XINAFOATE
  5. ALLOPURINOL [Concomitant]
     Active Substance: ALLOPURINOL
  6. TYLENOL [Concomitant]
     Active Substance: ACETAMINOPHEN
  7. SPIRIVA [Concomitant]
     Active Substance: TIOTROPIUM BROMIDE MONOHYDRATE
  8. PREDNISONE [Concomitant]
     Active Substance: PREDNISONE
  9. HERBALS\TURMERIC [Concomitant]
     Active Substance: HERBALS\TURMERIC
  10. ASPIRIN [Concomitant]
     Active Substance: ASPIRIN
  11. PANTOPRAZOLE [Concomitant]
     Active Substance: PANTOPRAZOLE
  12. RIVASTIGMINE [Concomitant]
     Active Substance: RIVASTIGMINE
  13. FUROSEMIDE [Concomitant]
     Active Substance: FUROSEMIDE
  14. RYTARY [Concomitant]
     Active Substance: CARBIDOPA\LEVODOPA
  15. AMIODARONE [Concomitant]
     Active Substance: AMIODARONE
  16. ATORVASTATIN [Concomitant]
     Active Substance: ATORVASTATIN
  17. MIDODRINE [Concomitant]
     Active Substance: MIDODRINE
  18. DULCOLAX (BISACODYL) [Concomitant]
     Active Substance: BISACODYL

REACTIONS (1)
  - Death [Fatal]

NARRATIVE: CASE EVENT DATE: 20240716
